FAERS Safety Report 7534514-2 (Version None)
Quarter: 2011Q2

REPORT INFORMATION
  Report Type: 
  Country: None (occurrence: None)
  Receive Date: 20110609
  Receipt Date: 20090608
  Transmission Date: 20111010
  Serious: Yes (Death, Disabling)
  Sender: FDA-Public Use
  Company Number: PHHY2008JP10379

PATIENT
  Sex: Female

DRUGS (6)
  1. ALDACTONE [Concomitant]
     Dosage: 25 MG, UNK
     Route: 048
     Dates: start: 20080303, end: 20080304
  2. PURSENNID [Concomitant]
     Dosage: 24 MG, UNK
     Dates: start: 20061223, end: 20080304
  3. MUCOSOLVAN [Concomitant]
     Dosage: 15 ML, UNK
     Dates: start: 20071125, end: 20080304
  4. LASIX [Concomitant]
     Dosage: 40 MG, UNK
     Route: 048
     Dates: start: 20080303, end: 20080304
  5. FARESTON [Concomitant]
     Dosage: UNK
     Route: 048
     Dates: start: 20070416
  6. FEMARA [Suspect]
     Indication: BREAST CANCER
     Dosage: 2.5 MG, UNK
     Dates: start: 20070417

REACTIONS (2)
  - OESOPHAGEAL STENOSIS [None]
  - PNEUMONIA ASPIRATION [None]
